FAERS Safety Report 21691700 (Version 1)
Quarter: 2022Q4

REPORT INFORMATION
  Report Type: Spontaneous
  Country: US (occurrence: US)
  Receive Date: 20221207
  Receipt Date: 20221207
  Transmission Date: 20230113
  Serious: Yes (Other)
  Sender: FDA-Public Use
  Company Number: US-LUPIN PHARMACEUTICALS INC.-2022-14087

PATIENT
  Age: 63 Year
  Sex: Male

DRUGS (10)
  1. VANCOMYCIN [Suspect]
     Active Substance: VANCOMYCIN
     Indication: Escherichia infection
     Dosage: UNK
     Route: 065
  2. VANCOMYCIN [Suspect]
     Active Substance: VANCOMYCIN
     Indication: Enterococcal infection
  3. LINEZOLID [Suspect]
     Active Substance: LINEZOLID
     Indication: Escherichia infection
     Dosage: UNK
     Route: 065
  4. LINEZOLID [Suspect]
     Active Substance: LINEZOLID
     Indication: Enterococcal infection
  5. AMPICILLIN [Suspect]
     Active Substance: AMPICILLIN
     Indication: Escherichia infection
     Dosage: UNK
     Route: 065
  6. AMPICILLIN [Suspect]
     Active Substance: AMPICILLIN
     Indication: Enterococcal infection
  7. DAPTOMYCIN [Suspect]
     Active Substance: DAPTOMYCIN
     Indication: Escherichia infection
     Dosage: UNK
     Route: 065
  8. DAPTOMYCIN [Suspect]
     Active Substance: DAPTOMYCIN
     Indication: Enterococcal infection
  9. OMADACYCLINE [Concomitant]
     Active Substance: OMADACYCLINE
     Indication: Escherichia infection
     Dosage: 300 MG, QD
     Route: 048
  10. OMADACYCLINE [Concomitant]
     Active Substance: OMADACYCLINE
     Indication: Enterococcal infection

REACTIONS (1)
  - Drug ineffective [Unknown]
